FAERS Safety Report 24319620 (Version 2)
Quarter: 2024Q4

REPORT INFORMATION
  Report Type: Report from Study
  Country: US (occurrence: US)
  Receive Date: 20240914
  Receipt Date: 20241002
  Transmission Date: 20250114
  Serious: No
  Sender: ABBVIE
  Company Number: US-ABBVIE-5808614

PATIENT
  Age: 38 Year
  Sex: Male
  Weight: 79 kg

DRUGS (2)
  1. RINVOQ [Suspect]
     Active Substance: UPADACITINIB
     Indication: Crohn^s disease
     Route: 048
     Dates: start: 20230911
  2. RINVOQ [Suspect]
     Active Substance: UPADACITINIB
     Indication: Crohn^s disease
     Route: 048

REACTIONS (10)
  - Sinus disorder [Not Recovered/Not Resolved]
  - Constipation [Recovered/Resolved]
  - Visual impairment [Recovered/Resolved]
  - Crohn^s disease [Not Recovered/Not Resolved]
  - Dizziness [Recovered/Resolved]
  - Blood cholesterol increased [Not Recovered/Not Resolved]
  - Panic reaction [Unknown]
  - Migraine [Unknown]
  - Constipation [Not Recovered/Not Resolved]
  - Anxiety [Unknown]

NARRATIVE: CASE EVENT DATE: 20230911
